FAERS Safety Report 5230019-2 (Version None)
Quarter: 2007Q1

REPORT INFORMATION
  Report Type: 
  Country: None (occurrence: None)
  Receive Date: 20070206
  Receipt Date: 20060921
  Transmission Date: 20070707
  Serious: No
  Sender: FDA-Public Use
  Company Number: US-GLAXOSMITHKLINE-A0619415A

PATIENT
  Age: 58 Year
  Sex: Female

DRUGS (3)
  1. PAXIL [Suspect]
     Dosage: 20MG PER DAY
     Route: 048
     Dates: start: 20031201, end: 20060701
  2. LISINOPRIL [Concomitant]
  3. INSULIN NOVOLIN [Concomitant]

REACTIONS (9)
  - DRUG WITHDRAWAL SYNDROME [None]
  - DYSKINESIA [None]
  - DYSPHONIA [None]
  - INCOHERENT [None]
  - IRRITABILITY [None]
  - PYREXIA [None]
  - RESTLESSNESS [None]
  - TARDIVE DYSKINESIA [None]
  - TREMOR [None]
